FAERS Safety Report 20011328 (Version 3)
Quarter: 2022Q1

REPORT INFORMATION
  Report Type: Spontaneous
  Country: US (occurrence: US)
  Receive Date: 20211029
  Receipt Date: 20220103
  Transmission Date: 20220423
  Serious: Yes (Other)
  Sender: FDA-Public Use
  Company Number: US-AUROBINDO-AUR-APL-2021-043443

PATIENT
  Age: 52 Year
  Sex: Female
  Weight: 66.667 kg

DRUGS (4)
  1. GABAPENTIN [Suspect]
     Active Substance: GABAPENTIN
     Indication: Pain management
     Dosage: 300 MILLIGRAM TO 600 MILLIGRAM
     Route: 065
     Dates: start: 2019
  2. GABAPENTIN [Suspect]
     Active Substance: GABAPENTIN
     Indication: Nerve injury
     Dosage: 400 MILLIGRAM
     Route: 065
  3. GABAPENTIN [Suspect]
     Active Substance: GABAPENTIN
     Dosage: 600 MILLIGRAM, FOUR TIMES/DAY
     Route: 065
  4. HYDROCODONE [Concomitant]
     Active Substance: HYDROCODONE
     Indication: Product used for unknown indication
     Dosage: UNK
     Route: 065

REACTIONS (11)
  - Neoplasm malignant [Unknown]
  - Ear pain [Recovering/Resolving]
  - Fungal infection [Unknown]
  - Nausea [Not Recovered/Not Resolved]
  - Oral pustule [Unknown]
  - Scar pain [Unknown]
  - Toothache [Recovering/Resolving]
  - Ulcer [Unknown]
  - Urinary tract infection [Recovered/Resolved with Sequelae]
  - Vomiting [Not Recovered/Not Resolved]
  - Weight decreased [Not Recovered/Not Resolved]

NARRATIVE: CASE EVENT DATE: 20201201
